FAERS Safety Report 11988937 (Version 1)
Quarter: 2016Q1

REPORT INFORMATION
  Report Type: Report from Study
  Country: US (occurrence: US)
  Receive Date: 20160202
  Receipt Date: 20160202
  Transmission Date: 20160526
  Serious: No
  Sender: FDA-Public Use
  Company Number: US-ABBVIE-15K-163-1343164-00

PATIENT
  Age: 34 Year
  Sex: Female

DRUGS (2)
  1. HUMIRA [Suspect]
     Active Substance: ADALIMUMAB
     Route: 065
     Dates: start: 20150116, end: 20150116
  2. HUMIRA [Suspect]
     Active Substance: ADALIMUMAB
     Indication: COLITIS ULCERATIVE
     Route: 065
     Dates: start: 20141212, end: 20141212

REACTIONS (6)
  - Nasopharyngitis [Not Recovered/Not Resolved]
  - Oropharyngeal pain [Not Recovered/Not Resolved]
  - Palpitations [Recovered/Resolved with Sequelae]
  - Sinusitis [Not Recovered/Not Resolved]
  - Paranasal sinus hypersecretion [Unknown]
  - Palpitations [Unknown]

NARRATIVE: CASE EVENT DATE: 20141216
